FAERS Safety Report 25044080 (Version 2)
Quarter: 2025Q2

REPORT INFORMATION
  Report Type: Spontaneous
  Country: CA (occurrence: CA)
  Receive Date: 20250306
  Receipt Date: 20250604
  Transmission Date: 20250717
  Serious: Yes (Death, Life-Threatening, Hospitalization, Disabling, Other)
  Sender: SANOFI AVENTIS
  Company Number: CA-BAUSCH-BL-2023-003152

PATIENT
  Age: 44 Year
  Sex: Female

DRUGS (40)
  1. DICLOFENAC DIETHYLAMINE [Suspect]
     Active Substance: DICLOFENAC DIETHYLAMINE
     Indication: Product used for unknown indication
     Route: 065
  2. TRAMADOL HYDROCHLORIDE [Suspect]
     Active Substance: TRAMADOL HYDROCHLORIDE
     Indication: Product used for unknown indication
     Route: 065
  3. CORTISONE ACETATE [Suspect]
     Active Substance: CORTISONE ACETATE
     Indication: Rheumatoid arthritis
     Route: 061
  4. DESOXIMETASONE [Suspect]
     Active Substance: DESOXIMETASONE
     Indication: Rheumatoid arthritis
     Route: 003
  5. DESOXIMETASONE [Suspect]
     Active Substance: DESOXIMETASONE
     Route: 048
  6. DESOXIMETASONE [Suspect]
     Active Substance: DESOXIMETASONE
     Route: 065
  7. DESOXIMETASONE [Suspect]
     Active Substance: DESOXIMETASONE
     Route: 058
  8. DESOXIMETASONE [Suspect]
     Active Substance: DESOXIMETASONE
     Route: 003
  9. DICLOFENAC POTASSIUM [Suspect]
     Active Substance: DICLOFENAC POTASSIUM
     Indication: Product used for unknown indication
     Route: 065
  10. DICLOFENAC POTASSIUM [Suspect]
     Active Substance: DICLOFENAC POTASSIUM
     Indication: Product used for unknown indication
     Route: 048
  11. DICLOFENAC SODIUM [Suspect]
     Active Substance: DICLOFENAC SODIUM
     Route: 058
  12. DICLOFENAC SODIUM [Suspect]
     Active Substance: DICLOFENAC SODIUM
     Route: 065
  13. DICLOFENAC SODIUM [Suspect]
     Active Substance: DICLOFENAC SODIUM
     Route: 065
  14. DICLOFENAC SODIUM [Suspect]
     Active Substance: DICLOFENAC SODIUM
     Route: 048
  15. DICLOFENAC SODIUM [Suspect]
     Active Substance: DICLOFENAC SODIUM
     Route: 065
  16. HYDROCORTISONE [Suspect]
     Active Substance: HYDROCORTISONE
     Indication: Rheumatoid arthritis
     Route: 003
  17. HYDROCORTISONE [Suspect]
     Active Substance: HYDROCORTISONE
     Route: 061
  18. HYDROCORTISONE [Suspect]
     Active Substance: HYDROCORTISONE
     Route: 048
  19. HYDROCORTISONE [Suspect]
     Active Substance: HYDROCORTISONE
     Route: 058
  20. HYDROCORTISONE [Suspect]
     Active Substance: HYDROCORTISONE
  21. HYDROCORTISONE [Suspect]
     Active Substance: HYDROCORTISONE
     Route: 048
  22. HYDROCORTISONE BUTYRATE [Suspect]
     Active Substance: HYDROCORTISONE BUTYRATE
     Indication: Rheumatoid arthritis
     Route: 065
  23. LEFLUNOMIDE [Suspect]
     Active Substance: LEFLUNOMIDE
     Indication: Rheumatoid arthritis
     Route: 048
  24. LEFLUNOMIDE [Suspect]
     Active Substance: LEFLUNOMIDE
     Dosage: 20 MG, QD
     Route: 048
  25. LEFLUNOMIDE [Suspect]
     Active Substance: LEFLUNOMIDE
     Route: 048
  26. LEFLUNOMIDE [Suspect]
     Active Substance: LEFLUNOMIDE
     Route: 065
  27. OXYCODONE HYDROCHLORIDE [Suspect]
     Active Substance: OXYCODONE HYDROCHLORIDE
     Indication: Product used for unknown indication
     Route: 065
  28. PREDNISONE [Suspect]
     Active Substance: PREDNISONE
     Indication: Psoriatic arthropathy
     Route: 048
  29. PREDNISONE [Suspect]
     Active Substance: PREDNISONE
     Indication: Rheumatoid arthritis
     Route: 042
  30. PREDNISONE [Suspect]
     Active Substance: PREDNISONE
     Indication: Condition aggravated
     Route: 048
  31. PREDNISONE [Suspect]
     Active Substance: PREDNISONE
     Route: 065
  32. PREDNISONE [Suspect]
     Active Substance: PREDNISONE
     Route: 048
  33. PREDNISONE [Suspect]
     Active Substance: PREDNISONE
     Route: 065
  34. PREDNISONE [Suspect]
     Active Substance: PREDNISONE
     Route: 065
  35. PREDNISONE [Suspect]
     Active Substance: PREDNISONE
     Route: 065
  36. PREDNISONE [Suspect]
     Active Substance: PREDNISONE
     Route: 048
  37. SULFASALAZINE [Suspect]
     Active Substance: SULFASALAZINE
     Indication: Product used for unknown indication
     Route: 065
  38. SULFASALAZINE [Suspect]
     Active Substance: SULFASALAZINE
     Route: 065
  39. SULFASALAZINE [Suspect]
     Active Substance: SULFASALAZINE
     Dosage: UNK UNK, QD
     Route: 065
  40. TRIAMCINOLONE ACETONIDE [Suspect]
     Active Substance: TRIAMCINOLONE ACETONIDE
     Indication: Rheumatoid arthritis
     Route: 014

REACTIONS (22)
  - Duodenal ulcer perforation [Fatal]
  - Psoriatic arthropathy [Fatal]
  - Rheumatic fever [Fatal]
  - Rheumatoid arthritis [Fatal]
  - Systemic lupus erythematosus [Fatal]
  - Type 2 diabetes mellitus [Fatal]
  - Drug intolerance [Fatal]
  - Autoimmune disorder [Fatal]
  - Deep vein thrombosis postoperative [Fatal]
  - Gastrointestinal disorder [Fatal]
  - Liver injury [Fatal]
  - Lower respiratory tract infection [Fatal]
  - Pemphigus [Fatal]
  - Pericarditis [Fatal]
  - Treatment failure [Fatal]
  - Maternal exposure during pregnancy [Fatal]
  - Therapeutic product effect decreased [Fatal]
  - Drug ineffective [Fatal]
  - Therapy non-responder [Fatal]
  - Medication error [Fatal]
  - Product use in unapproved indication [Fatal]
  - Off label use [Fatal]
